FAERS Safety Report 6059506-4 (Version None)
Quarter: 2009Q1

REPORT INFORMATION
  Report Type: 
  Country: None (occurrence: None)
  Receive Date: 20090130
  Receipt Date: 20090120
  Transmission Date: 20090719
  Serious: Yes (Hospitalization)
  Sender: FDA-Public Use
  Company Number: DE-ELI_LILLY_AND_COMPANY-DE200901003402

PATIENT
  Sex: Female

DRUGS (6)
  1. LIPROLOG 50% LISPRO, 50% NPL [Suspect]
     Indication: TYPE 2 DIABETES MELLITUS
     Dosage: 20 U, EACH MORNING
     Route: 058
     Dates: start: 20080725, end: 20080918
  2. LIPROLOG 50% LISPRO, 50% NPL [Suspect]
     Dosage: 20 U, EACH EVENING
     Route: 058
     Dates: start: 20080725, end: 20080918
  3. INEGY [Concomitant]
     Dosage: 10 MG, 2/D
     Route: 065
     Dates: start: 20060201
  4. AMLODIPINE [Concomitant]
     Dosage: 5 MG, 2/D
     Route: 065
     Dates: start: 20070101
  5. VOTUM [Concomitant]
     Dosage: 40 MG, 2/D
     Route: 048
     Dates: start: 20071101
  6. HYDROCORTISONE [Concomitant]
     Indication: CHRONIC MYELOID LEUKAEMIA
     Dosage: 30 MG, 2/D
     Route: 065
     Dates: start: 20060101

REACTIONS (3)
  - DEHYDRATION [None]
  - HYPOGLYCAEMIA [None]
  - TACHYARRHYTHMIA [None]
